FAERS Safety Report 19547589 (Version 1)
Quarter: 2021Q3

REPORT INFORMATION
  Report Type: Spontaneous
  Country: US (occurrence: US)
  Receive Date: 20210714
  Receipt Date: 20210714
  Transmission Date: 20211014
  Serious: Yes (Other)
  Sender: FDA-Public Use
  Company Number: None

PATIENT
  Age: 82 Year
  Sex: Male
  Weight: 68.85 kg

DRUGS (8)
  1. ALLERGY RELIEF INDOOR AND OUTDOOR ALLERGIES [Suspect]
     Active Substance: CETIRIZINE HYDROCHLORIDE
     Indication: EAR DISORDER
     Dosage: ?          QUANTITY:1 TABLET(S);?
     Route: 048
     Dates: start: 20120621, end: 20210712
  2. TUMERIC [Concomitant]
     Active Substance: HERBALS\TURMERIC
  3. CHLORTHALIDONE. [Concomitant]
     Active Substance: CHLORTHALIDONE
  4. COENZYME Q?10 [Concomitant]
  5. ALLERGY RELIEF INDOOR AND OUTDOOR ALLERGIES [Suspect]
     Active Substance: CETIRIZINE HYDROCHLORIDE
     Indication: EUSTACHIAN TUBE DYSFUNCTION
     Dosage: ?          QUANTITY:1 TABLET(S);?
     Route: 048
     Dates: start: 20120621, end: 20210712
  6. AREDS 2 [Concomitant]
     Active Substance: MINERALS\VITAMINS
  7. VITAMIN B12 [Concomitant]
     Active Substance: CYANOCOBALAMIN
  8. DAILY MULTI?VITAMIN [Concomitant]
     Active Substance: VITAMINS

REACTIONS (3)
  - Sleep terror [None]
  - Pruritus [None]
  - Insomnia [None]

NARRATIVE: CASE EVENT DATE: 20210711
